FAERS Safety Report 8601076-8 (Version None)
Quarter: 2012Q3

REPORT INFORMATION
  Report Type: 
  Country: None (occurrence: None)
  Receive Date: 20120806
  Receipt Date: 20120724
  Transmission Date: 20120928
  Serious: Yes (Hospitalization, Other)
  Sender: FDA-Public Use
  Company Number: 2011MA004945

PATIENT
  Age: 45 Year
  Sex: Male
  Weight: 94.3482 kg

DRUGS (15)
  1. ASPIRIN [Concomitant]
  2. CALCIUM CARBONATE [Concomitant]
  3. SIMVASTATIN [Concomitant]
  4. RIFAMPIN INH [Concomitant]
  5. TRAMADOL HCL [Suspect]
     Indication: PAIN
     Dates: start: 20090625, end: 20100715
  6. FLUNISOLIDE [Concomitant]
  7. MINERAL OIL [Concomitant]
  8. OMEPRAZOLE [Concomitant]
  9. VITAMIN B COMPLEX CAP [Concomitant]
  10. GABAPENTIN [Suspect]
     Indication: PAIN
     Dosage: 800 MG;TID;PO
     Route: 048
     Dates: start: 20090625, end: 20100715
  11. GABAPENTIN [Suspect]
     Indication: NEUROPATHY PERIPHERAL
     Dosage: 800 MG;TID;PO
     Route: 048
     Dates: start: 20090625, end: 20100715
  12. POLYNINIL ALCOHOL [Concomitant]
  13. HYDROXYZINE PAMOATE [Concomitant]
  14. CLARITIN [Concomitant]
  15. HYDROCHLOROTHIAZIDE [Concomitant]

REACTIONS (7)
  - CHEST PAIN [None]
  - EROSIVE OESOPHAGITIS [None]
  - OESOPHAGITIS HAEMORRHAGIC [None]
  - HICCUPS [None]
  - HAEMATEMESIS [None]
  - ABDOMINAL PAIN UPPER [None]
  - OESOPHAGEAL SPASM [None]
